FAERS Safety Report 7418409-0 (Version None)
Quarter: 2011Q2

REPORT INFORMATION
  Report Type: 
  Country: None (occurrence: None)
  Receive Date: 20110415
  Receipt Date: 20110412
  Transmission Date: 20111010
  Serious: Yes (Other)
  Sender: FDA-Public Use
  Company Number: US-PFIZER INC-2010127728

PATIENT
  Sex: Female

DRUGS (1)
  1. LIPITOR [Suspect]
     Indication: BLOOD CHOLESTEROL INCREASED
     Dosage: 10 MG, DAILY
     Route: 048
     Dates: start: 20090401

REACTIONS (4)
  - INTRAOCULAR PRESSURE INCREASED [None]
  - EYE HAEMORRHAGE [None]
  - FATIGUE [None]
  - OPTIC NERVE DISORDER [None]
